FAERS Safety Report 7627666-7 (Version None)
Quarter: 2011Q3

REPORT INFORMATION
  Report Type: 
  Country: None (occurrence: None)
  Receive Date: 20110713
  Receipt Date: 20110628
  Transmission Date: 20111222
  Serious: Yes (Hospitalization)
  Sender: FDA-Public Use
  Company Number: AUR-APL-2011-03951

PATIENT
  Age: 43 Year
  Sex: Male

DRUGS (15)
  1. MIRTAZAPINE [Suspect]
     Indication: MAJOR DEPRESSION
     Dosage: 30 MG, 1 D
  2. LORAZEPAM [Suspect]
     Indication: DEPRESSION
     Dosage: 1 TO 2 MG BEFORE SLEEP
  3. LEVOTHYROXINE SODIUM [Concomitant]
  4. OLANZAPINE [Suspect]
     Indication: PRODUCT USED FOR UNKNOWN INDICATION
     Dosage: 5 MG, AT NIGHT
  5. ZALEPLON [Suspect]
     Indication: PRODUCT USED FOR UNKNOWN INDICATION
     Dosage: AT NIGHT (AT NIGHT)
  6. FLUVOXAMINE (FLUVOXAMINE) [Suspect]
     Indication: MAJOR DEPRESSION
     Dosage: 100 MG, 1 D
  7. VALPROATE SODIUM [Suspect]
     Indication: PRODUCT USED FOR UNKNOWN INDICATION
     Dosage: 600 MG, 1 D
  8. ZOLPIDEM [Suspect]
     Indication: DEPRESSION
     Dosage: AT NIGHT (AT NIGHT)
  9. CLORAZEPATE DIPOTASSIUM [Suspect]
     Indication: DEPRESSION
     Dosage: 5 MG, BEFORE SLEEP
  10. SERTRALINE HYDROCHLORIDE [Suspect]
     Indication: DEPRESSION
     Dosage: 100 MG, 1 D
  11. VENLAFAXINE HCL [Suspect]
     Indication: DEPRESSION
     Dosage: 75 MG, 1 D
  12. FLUOXETINE HYDROCHLORIDE [Suspect]
     Indication: PRODUCT USED FOR UNKNOWN INDICATION
     Dosage: 20 MG, 1 D
  13. MOCLOBEMIDE (MOCLOBEMIDE) [Suspect]
     Indication: DEPRESSION
     Dosage: 300 MG, 1 D
  14. MIANSERIN (MIANSERIN) [Suspect]
     Indication: DEPRESSION
     Dosage: 30 MG, AT NIGHT
  15. CHLORPROTHIXENE (CHLORPROTHIXENE) [Suspect]
     Indication: PRODUCT USED FOR UNKNOWN INDICATION
     Dosage: 60 MG, 1 D

REACTIONS (29)
  - DEPRESSION [None]
  - INSOMNIA [None]
  - MENTAL RETARDATION [None]
  - BRAIN INJURY [None]
  - IRRITABILITY [None]
  - CEREBRAL ATROPHY [None]
  - PSYCHOMOTOR SKILLS IMPAIRED [None]
  - BIPOLAR DISORDER [None]
  - SOMNOLENCE [None]
  - INCREASED APPETITE [None]
  - MEMORY IMPAIRMENT [None]
  - TACHYPHRENIA [None]
  - POOR PERSONAL HYGIENE [None]
  - THINKING ABNORMAL [None]
  - PERSONALITY DISORDER [None]
  - AGITATION [None]
  - URINARY INCONTINENCE [None]
  - RESTLESSNESS [None]
  - ANXIETY [None]
  - APATHY [None]
  - COGNITIVE DISORDER [None]
  - AKATHISIA [None]
  - AFFECT LABILITY [None]
  - AFFECTIVE DISORDER [None]
  - DRUG INEFFECTIVE [None]
  - WEIGHT INCREASED [None]
  - POLYURIA [None]
  - SOCIAL AVOIDANT BEHAVIOUR [None]
  - FRONTOTEMPORAL DEMENTIA [None]
